FAERS Safety Report 9721506 (Version 1)
Quarter: 2013Q4

REPORT INFORMATION
  Report Type: Spontaneous
  Country: US (occurrence: US)
  Receive Date: 20131130
  Receipt Date: 20131130
  Transmission Date: 20140711
  Serious: Yes (Death, Life-Threatening)
  Sender: FDA-Public Use
  Company Number: US-INDICUS PHARMA-000198

PATIENT
  Age: 39 Year
  Sex: Male

DRUGS (2)
  1. TRANYLCYPROMINE [Suspect]
     Dosage: 4 10 MG, ~ 3-4 HOURS PRIOR TO ARRIVAL
     Route: 048
  2. METFORMIN HYDROCHLORIDE [Suspect]
     Dosage: 40-60 TABLETS
     Route: 048

REACTIONS (6)
  - Completed suicide [Fatal]
  - Exposure via ingestion [Fatal]
  - Hypotension [Unknown]
  - Hepatic failure [Unknown]
  - Renal failure [Unknown]
  - Acute respiratory distress syndrome [Unknown]
